FAERS Safety Report 5729648-9 (Version None)
Quarter: 2008Q2

REPORT INFORMATION
  Report Type: 
  Country: None (occurrence: None)
  Receive Date: 20080501
  Receipt Date: 20080422
  Transmission Date: 20081010
  Serious: Yes (Hospitalization)
  Sender: FDA-Public Use
  Company Number: FRP08000458

PATIENT
  Age: 85 Year
  Sex: Female

DRUGS (11)
  1. ACTONEL [Suspect]
     Dosage: ORAL
     Route: 048
     Dates: start: 20080110, end: 20080306
  2. INIPOP /01263201/(PANTOPRAZOLE) [Suspect]
     Dosage: ORAL
     Route: 048
     Dates: start: 20080229, end: 20080306
  3. STABLON /00956301/(TIANEPTINE) [Suspect]
     Dosage: ORAL
     Route: 048
     Dates: start: 20080303, end: 20080306
  4. CALCIDOSE VITAMINE D(CALCIUM CARBONATE, COLECALCIFEROL) [Suspect]
     Dosage: ORAL
     Route: 048
     Dates: start: 20080110, end: 20080306
  5. DELURSAN(URSODEOXYCHOLIC ACID) [Suspect]
     Dosage: ORAL
     Route: 048
     Dates: start: 20070101, end: 20080306
  6. POTASSIUM CHLORIDE [Suspect]
     Dosage: ORAL
     Route: 048
     Dates: start: 20070101, end: 20080306
  7. FUROSEMIDE [Suspect]
     Dosage: ORAL
     Route: 048
     Dates: start: 20070101, end: 20080306
  8. AMIODARONE HCL [Suspect]
     Dosage: ORAL
     Route: 048
     Dates: start: 20070101, end: 20080306
  9. PREDNISOLONE [Suspect]
     Dosage: ORAL
     Route: 048
     Dates: start: 20070101, end: 20080306
  10. PREVISCAN (FLUINDIONE) [Concomitant]
  11. HEMIGOXINE NATIVELLE TABLETS (DIGOXIN) [Concomitant]

REACTIONS (2)
  - HAEMATURIA [None]
  - THROMBOCYTOPENIA [None]
